FAERS Safety Report 8398196-2 (Version None)
Quarter: 2012Q2

REPORT INFORMATION
  Report Type: 
  Country: None (occurrence: None)
  Receive Date: 20120531
  Receipt Date: 20120522
  Transmission Date: 20120825
  Serious: Yes (Death)
  Sender: FDA-Public Use
  Company Number: US-NOVOPROD-348098

PATIENT
  Age: 66 Year
  Sex: Male
  Weight: 115 kg

DRUGS (1)
  1. NOVOSEVEN RT [Suspect]
     Indication: FACTOR VIII DEFICIENCY
     Dosage: UNK UNK, PRN
     Route: 042

REACTIONS (1)
  - BRAIN STEM HAEMORRHAGE [None]
